FAERS Safety Report 10860957 (Version 1)
Quarter: 2015Q1

REPORT INFORMATION
  Report Type: Spontaneous
  Country: US (occurrence: None)
  Receive Date: 20150218
  Receipt Date: 20150218
  Transmission Date: 20150721
  Serious: No
  Sender: FDA-Public Use
  Company Number: None

PATIENT
  Age: 37 Year
  Sex: Male
  Weight: 77.11 kg

DRUGS (1)
  1. CLONAZEPAM 2MG MYLAN [Suspect]
     Active Substance: CLONAZEPAM
     Indication: INSOMNIA
     Dosage: 1 PILL QHS/BEDTIME ORAL
     Route: 048
     Dates: start: 20150206, end: 20150212

REACTIONS (3)
  - Product quality issue [None]
  - No therapeutic response [None]
  - Product substitution issue [None]

NARRATIVE: CASE EVENT DATE: 20150212
